FAERS Safety Report 5494705-1 (Version None)
Quarter: 2007Q4

REPORT INFORMATION
  Report Type: 
  Country: None (occurrence: None)
  Receive Date: 20071023
  Receipt Date: 20071023
  Transmission Date: 20080405
  Serious: Yes (Other)
  Sender: FDA-Public Use
  Company Number: None

PATIENT
  Age: 51 Year
  Sex: Male
  Weight: 99.7913 kg

DRUGS (1)
  1. VENTOLIN [Suspect]
     Indication: ASTHMA
     Dosage: 2 PUFFS  2-4 TIMES DAILY  INHAL
     Route: 055
     Dates: start: 20071002, end: 20071021

REACTIONS (5)
  - EAR PAIN [None]
  - HEADACHE [None]
  - ILL-DEFINED DISORDER [None]
  - INNER EAR DISORDER [None]
  - PHARYNGOLARYNGEAL PAIN [None]
